FAERS Safety Report 24767950 (Version 1)
Quarter: 2024Q4

REPORT INFORMATION
  Report Type: Spontaneous
  Country: GB (occurrence: None)
  Receive Date: 20241223
  Receipt Date: 20241223
  Transmission Date: 20250114
  Serious: Yes (Disabling)
  Sender: Public
  Company Number: None

PATIENT
  Age: 22 Year
  Sex: Male
  Weight: 92 kg

DRUGS (1)
  1. CITALOPRAM [Suspect]
     Active Substance: CITALOPRAM
     Indication: Obsessive-compulsive disorder
     Dates: start: 20071110, end: 20071208

REACTIONS (9)
  - Genital hypoaesthesia [None]
  - Male orgasmic disorder [None]
  - Libido decreased [None]
  - Emotional disorder [None]
  - Premature ejaculation [None]
  - Therapy interrupted [None]
  - Sexual dysfunction [None]
  - Suicidal ideation [None]
  - Feeling of despair [None]

NARRATIVE: CASE EVENT DATE: 20071110
